FAERS Safety Report 8329895 (Version 2)
Quarter: 2013Q3

REPORT INFORMATION
  Report Type: Spontaneous
  Country: US (occurrence: US)
  Receive Date: 20120111
  Receipt Date: 20130718
  Transmission Date: 20140515
  Serious: No
  Sender: FDA-Public Use
  Company Number: US-BIOGENIDEC-2012BI000332

PATIENT
  Age: 48 Year
  Sex: Male

DRUGS (2)
  1. AVONEX [Suspect]
     Indication: MULTIPLE SCLEROSIS
     Route: 030
  2. AVONEX [Suspect]
     Indication: MULTIPLE SCLEROSIS
     Route: 030
     Dates: start: 20111126

REACTIONS (4)
  - Abnormal dreams [Recovered/Resolved]
  - Poor quality sleep [Recovered/Resolved]
  - Influenza like illness [Recovered/Resolved]
  - Injection site pain [Recovered/Resolved]
